FAERS Safety Report 4758640-6 (Version None)
Quarter: 2005Q3

REPORT INFORMATION
  Report Type: 
  Country: None (occurrence: None)
  Receive Date: 20050826
  Receipt Date: 20050816
  Transmission Date: 20060218
  Serious: Yes (Hospitalization)
  Sender: FDA-Public Use
  Company Number: 2005117595

PATIENT
  Age: 50 Year
  Sex: Female

DRUGS (1)
  1. ZELDOX (CAPSULES)  (ZIPRASIDONE) [Suspect]
     Indication: PSYCHOTIC DISORDER
     Dosage: 160 MG (80 MG, 2 IN 1 D), ORAL
     Route: 048

REACTIONS (7)
  - APHASIA [None]
  - FATIGUE [None]
  - HEADACHE [None]
  - HYPOAESTHESIA [None]
  - LEUKOCYTOSIS [None]
  - NEUROLOGICAL SYMPTOM [None]
  - VISUAL FIELD DEFECT [None]
